FAERS Safety Report 11895271 (Version 2)
Quarter: 2016Q1

REPORT INFORMATION
  Report Type: Spontaneous
  Country: US (occurrence: US)
  Receive Date: 20160107
  Receipt Date: 20160118
  Transmission Date: 20160526
  Serious: Yes (Other)
  Sender: FDA-Public Use
  Company Number: US-DSJP-DSJ-2016-100273AA

PATIENT

DRUGS (16)
  1. ACETAMINOPHEN W/HYDROCODONE [Suspect]
     Active Substance: ACETAMINOPHEN\HYDROCODONE
     Dosage: DAILY DOSE NOT REPORTED
     Route: 048
  2. LIPITOR [Suspect]
     Active Substance: ATORVASTATIN CALCIUM
     Dosage: UNK, QD, AT BEDTIME
     Route: 048
  3. VIAGRA [Suspect]
     Active Substance: SILDENAFIL CITRATE
     Dosage: DAILY DOSE NOT REPORTED
     Route: 048
  4. BACLOFEN TABLETS [Suspect]
     Active Substance: BACLOFEN
     Indication: PRODUCT USED FOR UNKNOWN INDICATION
     Dosage: UNK, QID
     Route: 048
  5. ASPIRIN. [Suspect]
     Active Substance: ASPIRIN
     Dosage: UNK, DAILY
     Route: 048
  6. BACLOFEN INTRATHECAL [Suspect]
     Active Substance: BACLOFEN
     Indication: PRODUCT USED FOR UNKNOWN INDICATION
     Dosage: 310MCG/DAY
     Route: 037
  7. AMPYRA [Suspect]
     Active Substance: DALFAMPRIDINE
     Dosage: UNK, ONCE EVERY 12HR
     Route: 048
  8. LEVITRA [Suspect]
     Active Substance: VARDENAFIL HYDROCHLORIDE TRIHYDRATE
     Dosage: DAILY DOSE NOT REPORTED
     Route: 048
  9. CYMBALTA [Suspect]
     Active Substance: DULOXETINE HYDROCHLORIDE
     Dosage: 2 CAPSULES DAILY
     Route: 065
  10. OLMESARTAN MEDOXOMIL. [Suspect]
     Active Substance: OLMESARTAN MEDOXOMIL
     Indication: PRODUCT USED FOR UNKNOWN INDICATION
     Dosage: 20 MG, DAILY
     Route: 048
  11. SYNTHROID [Suspect]
     Active Substance: LEVOTHYROXINE SODIUM
     Dosage: UNK, DAILY
     Route: 048
  12. TESTOSTERONE CYPIONATE. [Suspect]
     Active Substance: TESTOSTERONE CYPIONATE
     Dosage: UNK, ONCE EVERY 1 MO
     Route: 030
  13. FROVA [Suspect]
     Active Substance: FROVATRIPTAN SUCCINATE
     Dosage: UNK, DAILY
     Route: 048
  14. LORAZEPAM. [Suspect]
     Active Substance: LORAZEPAM
     Dosage: UNK, THREE TIMES DAILY AS NEEDED
     Route: 048
  15. TYSABRI [Suspect]
     Active Substance: NATALIZUMAB
     Dosage: 300 MG, ONCE EVERY 4 WK
     Route: 042
  16. NITROSTAT [Suspect]
     Active Substance: NITROGLYCERIN
     Dosage: UNK, AS NEEDED UP TO THREE DOSES
     Route: 065

REACTIONS (3)
  - Drug withdrawal syndrome [Unknown]
  - Therapeutic response decreased [Recovered/Resolved]
  - Muscle spasticity [Recovered/Resolved]

NARRATIVE: CASE EVENT DATE: 20151215
